FAERS Safety Report 10164812 (Version 1)
Quarter: 2014Q2

REPORT INFORMATION
  Report Type: Spontaneous
  Country: US (occurrence: US)
  Receive Date: 20140510
  Receipt Date: 20140510
  Transmission Date: 20141212
  Serious: No
  Sender: FDA-Public Use
  Company Number: US-BRISTOL-MYERS SQUIBB COMPANY-20189890

PATIENT
  Age: 66 Year
  Sex: Male
  Weight: 104.31 kg

DRUGS (8)
  1. BYDUREON [Suspect]
     Indication: DIABETES MELLITUS
  2. NEXIUM [Suspect]
     Indication: GASTROOESOPHAGEAL REFLUX DISEASE
     Dosage: INT:NOV13
  3. GLUCOPHAGE [Concomitant]
     Indication: DIABETES MELLITUS
  4. LANTUS [Concomitant]
     Indication: DIABETES MELLITUS
  5. JANUVIA [Concomitant]
     Indication: DIABETES MELLITUS
  6. LIPITOR [Concomitant]
     Indication: BLOOD CHOLESTEROL
  7. AMBIEN [Concomitant]
     Dosage: 1DF:2.5MG
  8. ZOLOFT [Concomitant]
     Indication: DEPRESSION

REACTIONS (2)
  - Diarrhoea [Unknown]
  - Eructation [Unknown]
